FAERS Safety Report 7230775-8 (Version None)
Quarter: 2011Q1

REPORT INFORMATION
  Report Type: 
  Country: None (occurrence: None)
  Receive Date: 20110118
  Receipt Date: 20110105
  Transmission Date: 20110831
  Serious: No
  Sender: FDA-Public Use
  Company Number: US-B.I. PHARMACEUTICALS,INC./RIDGEFIELD-2010-BP-14163BP

PATIENT
  Sex: Male

DRUGS (14)
  1. DIOVAN [Concomitant]
     Indication: HYPERTENSION
     Dosage: 160-12.5 EVERY DAY
  2. DOCUSATE SODIUM [Concomitant]
     Indication: CONSTIPATION
  3. PRILOSEC [Concomitant]
     Indication: DYSPEPSIA
  4. PRADAXA [Suspect]
     Dosage: 1 CAP BID
     Route: 048
     Dates: start: 20101210
  5. LIPITOR [Concomitant]
     Indication: BLOOD CHOLESTEROL INCREASED
  6. LASIX [Concomitant]
     Indication: FLUID RETENTION
     Dosage: 40 MG
  7. PROCRIT [Concomitant]
     Indication: ANAEMIA
     Dosage: AS NEEDED FOR ANEMIA
  8. MULTIVITAMIN [Concomitant]
     Indication: PROPHYLAXIS
  9. ADVAIR [Concomitant]
     Indication: LUNG DISORDER
     Dosage: DISCUS 250-50MEQ
  10. PRADAXA [Suspect]
     Indication: ATRIAL FIBRILLATION
     Dosage: 1 CAP BID
     Route: 048
     Dates: start: 20101207
  11. COD LIVER OIL [Concomitant]
     Indication: PROPHYLAXIS
  12. IRON [Concomitant]
     Indication: PROPHYLAXIS
     Dosage: 325 MG
  13. KLOR-CON [Concomitant]
     Indication: PROPHYLAXIS
     Dosage: 10 MEQ
  14. GLIMIPIRIDE [Concomitant]
     Indication: DIABETES MELLITUS
     Dosage: 2 MG

REACTIONS (2)
  - DYSPEPSIA [None]
  - INCREASED UPPER AIRWAY SECRETION [None]
